FAERS Safety Report 10158229 (Version 1)
Quarter: 2014Q2

REPORT INFORMATION
  Report Type: Report from Study
  Country: US (occurrence: US)
  Receive Date: 20140507
  Receipt Date: 20140507
  Transmission Date: 20141212
  Serious: Yes (Other)
  Sender: FDA-Public Use
  Company Number: PHEH2014US008909

PATIENT
  Sex: Female

DRUGS (38)
  1. TOBRAMYCIN [Suspect]
     Indication: BRONCHIECTASIS
     Dosage: 300 MG EVERY 12 HOURS
     Route: 048
  2. TOBRAMYCIN [Suspect]
     Indication: CHRONIC OBSTRUCTIVE PULMONARY DISEASE
  3. EXELON PATCH [Suspect]
     Indication: BRONCHIECTASIS
     Dosage: 4.6 MG, ONCE DAILY
     Route: 062
  4. EXELON PATCH [Suspect]
     Indication: CHRONIC OBSTRUCTIVE PULMONARY DISEASE
  5. ARCAPTA [Suspect]
     Indication: BRONCHIECTASIS
     Dosage: UNK
  6. ARCAPTA [Suspect]
     Indication: CHRONIC OBSTRUCTIVE PULMONARY DISEASE
  7. XANAX [Concomitant]
     Indication: BRONCHIECTASIS
     Dosage: 0.25 MG, TID
     Route: 048
  8. XANAX [Concomitant]
     Indication: CHRONIC OBSTRUCTIVE PULMONARY DISEASE
  9. ALBUTEROL [Concomitant]
     Indication: BRONCHIECTASIS
     Dosage: 3 ML, EVERY 4 HOURS
     Route: 055
  10. ALBUTEROL [Concomitant]
     Indication: CHRONIC OBSTRUCTIVE PULMONARY DISEASE
  11. ALBUTEROL [Concomitant]
     Indication: WHEEZING
  12. HUMALOG [Concomitant]
     Indication: BRONCHIECTASIS
     Dosage: UNK UKN, UNK
  13. HUMALOG [Concomitant]
     Indication: CHRONIC OBSTRUCTIVE PULMONARY DISEASE
  14. INSULIN GLARGINE [Concomitant]
     Indication: BRONCHIECTASIS
     Dosage: UNK
  15. INSULIN GLARGINE [Concomitant]
     Indication: CHRONIC OBSTRUCTIVE PULMONARY DISEASE
  16. SYMBICORT [Concomitant]
     Indication: BRONCHIECTASIS
     Dosage: 4.5 UG, BID (2 PUFFS)
     Route: 055
  17. SYMBICORT [Concomitant]
     Indication: CHRONIC OBSTRUCTIVE PULMONARY DISEASE
  18. ZETIA [Concomitant]
     Indication: BRONCHIECTASIS
     Dosage: 10 MG, ONCE DAILY
     Route: 048
  19. ZETIA [Concomitant]
     Indication: CHRONIC OBSTRUCTIVE PULMONARY DISEASE
  20. COQ [Concomitant]
     Indication: BRONCHIECTASIS
     Dosage: 100 MG, BID
     Route: 048
  21. COQ [Concomitant]
     Indication: CHRONIC OBSTRUCTIVE PULMONARY DISEASE
  22. CINNAMON [Concomitant]
     Indication: BRONCHIECTASIS
     Dosage: 500 MG, BID
     Route: 048
  23. CINNAMON [Concomitant]
     Indication: CHRONIC OBSTRUCTIVE PULMONARY DISEASE
  24. MULTI-VIT [Concomitant]
     Indication: BRONCHIECTASIS
     Dosage: UNK UKN, ONCE DAILY
     Route: 048
  25. MULTI-VIT [Concomitant]
     Indication: CHRONIC OBSTRUCTIVE PULMONARY DISEASE
  26. APO-FOLIC ACID [Concomitant]
     Indication: BRONCHIECTASIS
     Dosage: UNK UKN ONCE DAILY
  27. APO-FOLIC ACID [Concomitant]
     Indication: CHRONIC OBSTRUCTIVE PULMONARY DISEASE
  28. CALCIUM [Concomitant]
     Indication: BRONCHIECTASIS
     Dosage: UNK UKN, UNK
  29. CALCIUM [Concomitant]
     Indication: CHRONIC OBSTRUCTIVE PULMONARY DISEASE
  30. GLUCOSAMINE [Concomitant]
     Indication: BRONCHIECTASIS
     Dosage: 1500 MG, BID
  31. GLUCOSAMINE [Concomitant]
     Indication: CHRONIC OBSTRUCTIVE PULMONARY DISEASE
  32. FORADIL [Concomitant]
     Indication: BRONCHIECTASIS
     Dosage: UNK UKN, UNK
  33. FORADIL [Concomitant]
     Indication: CHRONIC OBSTRUCTIVE PULMONARY DISEASE
  34. SEEBRI [Concomitant]
     Indication: BRONCHIECTASIS
     Dosage: UNK UKN, UNK
  35. SEEBRI [Concomitant]
     Indication: CHRONIC OBSTRUCTIVE PULMONARY DISEASE
  36. XOLAIR [Concomitant]
     Indication: BRONCHIECTASIS
     Dosage: UNK
  37. XOLAIR [Concomitant]
     Indication: CHRONIC OBSTRUCTIVE PULMONARY DISEASE
  38. SYNTHROID [Concomitant]
     Dosage: 88 UG, QD
     Route: 048

REACTIONS (5)
  - Dementia Alzheimer^s type [Not Recovered/Not Resolved]
  - Dyspnoea exertional [Unknown]
  - Grunting [Unknown]
  - Cough [Unknown]
  - Dyspnoea [Unknown]
